FAERS Safety Report 6755479-7 (Version None)
Quarter: 2010Q2

REPORT INFORMATION
  Report Type: 
  Country: None (occurrence: None)
  Receive Date: 20100604
  Receipt Date: 20100526
  Transmission Date: 20101027
  Serious: Yes (Other)
  Sender: FDA-Public Use
  Company Number: FR-JNJFOC-20100601017

PATIENT
  Sex: Female

DRUGS (1)
  1. REMICADE [Suspect]
     Indication: VASCULITIS
     Dosage: TREATED FOR 10 YEARS
     Route: 042

REACTIONS (1)
  - BASAL CELL CARCINOMA [None]
